FAERS Safety Report 4684289-X (Version None)
Quarter: 2005Q2

REPORT INFORMATION
  Report Type: 
  Country: None (occurrence: None)
  Receive Date: 20050607
  Receipt Date: 20050414
  Transmission Date: 20051028
  Serious: Yes (Other)
  Sender: FDA-Public Use
  Company Number: PHNU2005DE01634

PATIENT
  Age: 55 Year
  Sex: Male

DRUGS (2)
  1. PROVAS [Suspect]
     Indication: HYPERTENSION
     Dosage: 40 MG, QD
     Route: 048
     Dates: start: 20020101
  2. PROVAS [Suspect]

REACTIONS (6)
  - ASTHENIA [None]
  - COORDINATION ABNORMAL [None]
  - DIZZINESS POSTURAL [None]
  - INTERVERTEBRAL DISC PROTRUSION [None]
  - MENTAL IMPAIRMENT [None]
  - SPINAL DISORDER [None]
